FAERS Safety Report 23617105 (Version 1)
Quarter: 2024Q1

REPORT INFORMATION
  Report Type: Spontaneous
  Country: CA (occurrence: CA)
  Receive Date: 20240311
  Receipt Date: 20240311
  Transmission Date: 20240410
  Serious: Yes (Other)
  Sender: FDA-Public Use
  Company Number: CA-FreseniusKabi-FK202403682

PATIENT
  Sex: Female

DRUGS (14)
  1. MOXIFLOXACIN HYDROCHLORIDE [Suspect]
     Active Substance: MOXIFLOXACIN HYDROCHLORIDE\MOXIFLOXACIN HYDROCHLORIDE MONOHYDRATE
     Indication: Pneumonia
  2. AMOXICILLIN AND CLAVULANATE POTASSIUM [Suspect]
     Active Substance: AMOXICILLIN\CLAVULANATE POTASSIUM
     Indication: Pneumonia
  3. CEFADROXIL [Suspect]
     Active Substance: CEFADROXIL
     Indication: Cellulitis
     Dosage: NOT SPECIFIED
  4. LEVOFLOXACIN [Suspect]
     Active Substance: LEVOFLOXACIN
     Indication: Pneumonia
     Dosage: FORM OF ADMIN: SOLUTION INHALATION
  5. DURVALUMAB [Concomitant]
     Active Substance: DURVALUMAB
     Indication: Metastatic neoplasm
     Dosage: DURATION: 731
  6. DURVALUMAB [Concomitant]
     Active Substance: DURVALUMAB
     Indication: Malignant melanoma
  7. IPILIMUMAB [Concomitant]
     Active Substance: IPILIMUMAB
     Indication: Metastatic neoplasm
  8. IPILIMUMAB [Concomitant]
     Active Substance: IPILIMUMAB
     Indication: Malignant melanoma
     Dosage: DURATION: 31
  9. IPILIMUMAB [Concomitant]
     Active Substance: IPILIMUMAB
     Indication: Disease progression
  10. NIVOLUMAB [Concomitant]
     Active Substance: NIVOLUMAB
     Indication: Metastatic neoplasm
  11. NIVOLUMAB [Concomitant]
     Active Substance: NIVOLUMAB
     Indication: Malignant melanoma
     Dosage: FORM OF ADMIN: SOLUTION INTRAVENOUS
  12. NIVOLUMAB [Concomitant]
     Active Substance: NIVOLUMAB
     Indication: Disease progression
  13. TRAMETINIB [Concomitant]
     Active Substance: TRAMETINIB
     Indication: Metastatic neoplasm
     Dosage: DURATION: 731
  14. TRAMETINIB [Concomitant]
     Active Substance: TRAMETINIB
     Indication: Malignant melanoma

REACTIONS (3)
  - Gastrointestinal disorder [Recovering/Resolving]
  - Metastatic malignant melanoma [Recovering/Resolving]
  - Neoplasm progression [Recovering/Resolving]
